FAERS Safety Report 15426825 (Version 1)
Quarter: 2018Q3

REPORT INFORMATION
  Report Type: Spontaneous
  Country: US (occurrence: US)
  Receive Date: 20180925
  Receipt Date: 20180925
  Transmission Date: 20181010
  Serious: No
  Sender: FDA-Public Use
  Company Number: US-INDIVIOR LIMITED-INDV-107363-2018

PATIENT
  Sex: Male

DRUGS (3)
  1. SUBOXONE [Suspect]
     Active Substance: BUPRENORPHINE HYDROCHLORIDE\NALOXONE HYDROCHLORIDE
     Dosage: UNK, CUTTING INTO PIECES
     Route: 060
  2. SUBOXONE [Suspect]
     Active Substance: BUPRENORPHINE HYDROCHLORIDE\NALOXONE HYDROCHLORIDE
     Indication: PAIN
     Dosage: 8MG, UNK
     Route: 060
  3. SUBOXONE [Suspect]
     Active Substance: BUPRENORPHINE HYDROCHLORIDE\NALOXONE HYDROCHLORIDE
     Dosage: UNK, TOOK ONE FORM PIECE OF A FILM DURING SELF TAPER
     Route: 060

REACTIONS (9)
  - Off label use [Recovered/Resolved]
  - Wrong technique in product usage process [Recovered/Resolved]
  - Vomiting [Recovered/Resolved]
  - Dizziness [Recovered/Resolved]
  - Drug withdrawal syndrome [Recovered/Resolved]
  - Feeling abnormal [Recovered/Resolved]
  - Intentional underdose [Recovered/Resolved]
  - Insomnia [Recovered/Resolved]
  - Vision blurred [Recovered/Resolved]
